FAERS Safety Report 6813620-1 (Version None)
Quarter: 2010Q3

REPORT INFORMATION
  Report Type: 
  Country: None (occurrence: None)
  Receive Date: 20100701
  Receipt Date: 20100622
  Transmission Date: 20110219
  Serious: Yes (Other)
  Sender: FDA-Public Use
  Company Number: BR-GENENTECH-303518

PATIENT
  Sex: Female
  Weight: 82 kg

DRUGS (2)
  1. RITUXIMAB [Suspect]
     Indication: SYSTEMIC LUPUS ERYTHEMATOSUS
     Dosage: 1000 MG/ML, UNK
     Route: 042
     Dates: start: 20070201
  2. RITUXIMAB [Suspect]
     Dosage: 1000 MG/ML, UNK
     Route: 042
     Dates: start: 20080101, end: 20081201

REACTIONS (8)
  - ASTHENIA [None]
  - BREAST DISORDER [None]
  - CHROMATURIA [None]
  - INTERVERTEBRAL DISC PROTRUSION [None]
  - NEPHROLITHIASIS [None]
  - PAIN [None]
  - SYSTEMIC LUPUS ERYTHEMATOSUS [None]
  - URINARY TRACT INFECTION [None]
